FAERS Safety Report 13300552 (Version 1)
Quarter: 2017Q1

REPORT INFORMATION
  Report Type: Spontaneous
  Country: US (occurrence: US)
  Receive Date: 20170307
  Receipt Date: 20170307
  Transmission Date: 20170428
  Serious: No
  Sender: FDA-Public Use
  Company Number: US-TEVA-717634USA

PATIENT
  Sex: Male

DRUGS (7)
  1. PEPCID [Concomitant]
     Active Substance: FAMOTIDINE
  2. TRAMADOL. [Concomitant]
     Active Substance: TRAMADOL
  3. XTANDI [Suspect]
     Active Substance: ENZALUTAMIDE
     Indication: PROSTATE CANCER
     Dosage: 160 MILLIGRAM DAILY;
     Route: 048
     Dates: start: 20130413
  4. ZYRTEC [Concomitant]
     Active Substance: CETIRIZINE HYDROCHLORIDE
  5. MEGACE [Concomitant]
     Active Substance: MEGESTROL ACETATE
  6. NEURONTIN [Concomitant]
     Active Substance: GABAPENTIN
  7. GABAPENTIN. [Suspect]
     Active Substance: GABAPENTIN
     Route: 065

REACTIONS (19)
  - Somnolence [Unknown]
  - Asthenia [Unknown]
  - Paraesthesia [Recovering/Resolving]
  - Headache [Unknown]
  - Prostatic specific antigen increased [Unknown]
  - Malaise [Unknown]
  - Gait disturbance [Not Recovered/Not Resolved]
  - Pain in extremity [Unknown]
  - Neuropathy peripheral [Unknown]
  - Oedema peripheral [Not Recovered/Not Resolved]
  - Sensitivity of teeth [Unknown]
  - Ligament pain [Recovering/Resolving]
  - Cough [Unknown]
  - Burning sensation [Unknown]
  - Pruritus [Unknown]
  - Weight increased [Not Recovered/Not Resolved]
  - Pain in extremity [Not Recovered/Not Resolved]
  - Constipation [Recovering/Resolving]
  - Arthralgia [Unknown]
